FAERS Safety Report 6122232-7 (Version None)
Quarter: 2009Q1

REPORT INFORMATION
  Report Type: 
  Country: None (occurrence: None)
  Receive Date: 20090318
  Receipt Date: 20090306
  Transmission Date: 20090719
  Serious: Yes (Other)
  Sender: FDA-Public Use
  Company Number: PHHY2008AT26346

PATIENT
  Sex: Female
  Weight: 72 kg

DRUGS (7)
  1. METHERGINE [Suspect]
     Dosage: UNK
     Route: 048
     Dates: start: 20070919, end: 20070921
  2. LOVENOX [Concomitant]
  3. MAGNOSOLV [Concomitant]
  4. PREGNAVITE [Concomitant]
  5. DEXIBUPROFEN [Concomitant]
  6. DALACIN [Concomitant]
     Indication: BACTERIAL INFECTION
  7. DALACIN [Concomitant]
     Indication: LABOUR PAIN

REACTIONS (5)
  - ACCIDENTAL EXPOSURE [None]
  - CAESAREAN SECTION [None]
  - DRUG EXPOSURE DURING PREGNANCY [None]
  - NORMAL NEWBORN [None]
  - UTERINE CONTRACTIONS DURING PREGNANCY [None]
